FAERS Safety Report 24536589 (Version 2)
Quarter: 2025Q2

REPORT INFORMATION
  Report Type: Spontaneous
  Country: US (occurrence: US)
  Receive Date: 20241022
  Receipt Date: 20250422
  Transmission Date: 20250717
  Serious: No
  Sender: SANOFI AVENTIS
  Company Number: US-SA-2024SA300901

PATIENT
  Sex: Female

DRUGS (12)
  1. DUPIXENT [Suspect]
     Active Substance: DUPILUMAB
     Indication: Asthma
     Route: 058
  2. DUPIXENT [Suspect]
     Active Substance: DUPILUMAB
     Dosage: 200 MG, QOW
     Route: 058
  3. TORSEMIDE [Concomitant]
     Active Substance: TORSEMIDE
  4. PREGABALIN [Concomitant]
     Active Substance: PREGABALIN
  5. TRELEGY ELLIPTA [Concomitant]
     Active Substance: FLUTICASONE FUROATE\UMECLIDINIUM BROMIDE\VILANTEROL TRIFENATATE
  6. ZAFIRLUKAST [Concomitant]
     Active Substance: ZAFIRLUKAST
  7. ALBUTEROL [Concomitant]
     Active Substance: ALBUTEROL
  8. AMLODIPINE [Concomitant]
     Active Substance: AMLODIPINE BESYLATE
  9. OZEMPIC [Concomitant]
     Active Substance: SEMAGLUTIDE
  10. LANTUS [Concomitant]
     Active Substance: INSULIN GLARGINE
  11. LYUMJEV KWIKPEN [Concomitant]
     Active Substance: INSULIN LISPRO
  12. QUETIAPINE FUMARATE [Concomitant]
     Active Substance: QUETIAPINE FUMARATE

REACTIONS (2)
  - Dyspnoea [Not Recovered/Not Resolved]
  - Extra dose administered [Unknown]

NARRATIVE: CASE EVENT DATE: 20250101
